FAERS Safety Report 8264463-6 (Version None)
Quarter: 2012Q2

REPORT INFORMATION
  Report Type: 
  Country: None (occurrence: None)
  Receive Date: 20120406
  Receipt Date: 20120329
  Transmission Date: 20120825
  Serious: Yes (Other)
  Sender: FDA-Public Use
  Company Number: DE-JNJFOC-20120402327

PATIENT
  Sex: Female
  Weight: 85 kg

DRUGS (3)
  1. TELMISARTAN [Concomitant]
     Indication: HYPERTENSION
  2. ESOMEPRAZOLE [Concomitant]
  3. RIVAROXABAN [Suspect]
     Indication: PRODUCT USED FOR UNKNOWN INDICATION
     Route: 048

REACTIONS (2)
  - BACK PAIN [None]
  - TOOTH INFECTION [None]
